FAERS Safety Report 10504975 (Version 2)
Quarter: 2014Q4

REPORT INFORMATION
  Report Type: Spontaneous
  Country: US (occurrence: US)
  Receive Date: 20141008
  Receipt Date: 20141205
  Transmission Date: 20150528
  Serious: Yes (Hospitalization)
  Sender: FDA-Public Use
  Company Number: US-B.I. PHARMACEUTICALS,INC./RIDGEFIELD-2014-BI-47593BP

PATIENT
  Sex: Female
  Weight: 61.36 kg

DRUGS (5)
  1. SPIRIVA [Suspect]
     Active Substance: TIOTROPIUM BROMIDE MONOHYDRATE
     Indication: LUNG DISORDER
     Dosage: 18 MCG
     Route: 055
     Dates: start: 2008
  2. TRIAMTERENE/ HCTZ [Concomitant]
     Indication: FLUID RETENTION
     Dosage: DOSE PER APPLICATION: 37.5/25 MG; DAILY DOSE: 37.5/25 MG
     Route: 048
     Dates: start: 1980
  3. ZOLOFT [Concomitant]
     Active Substance: SERTRALINE HYDROCHLORIDE
     Indication: IRRITABILITY
     Dosage: 25 MG
     Route: 048
     Dates: start: 1998
  4. CRESTOR [Concomitant]
     Active Substance: ROSUVASTATIN CALCIUM
     Indication: BLOOD CHOLESTEROL INCREASED
     Dosage: 40 MG
     Route: 048
     Dates: start: 1980
  5. SPIRIVA [Suspect]
     Active Substance: TIOTROPIUM BROMIDE MONOHYDRATE
     Indication: INHALATION THERAPY
     Dosage: 18 MCG
     Route: 055
     Dates: start: 20140818

REACTIONS (2)
  - Lung neoplasm malignant [Recovered/Resolved]
  - Dysgeusia [Recovered/Resolved]

NARRATIVE: CASE EVENT DATE: 2008
